FAERS Safety Report 23603502 (Version 1)
Quarter: 2024Q1

REPORT INFORMATION
  Report Type: Spontaneous
  Country: US (occurrence: US)
  Receive Date: 20240307
  Receipt Date: 20240307
  Transmission Date: 20240409
  Serious: Yes (Death, Other)
  Sender: FDA-Public Use
  Company Number: US-AUROBINDO-AUR-APL-2014-00738

PATIENT
  Age: 44 Year
  Sex: Female

DRUGS (4)
  1. FLUOXETINE [Suspect]
     Active Substance: FLUOXETINE HYDROCHLORIDE
     Indication: Product used for unknown indication
     Dosage: UNK UNK,UNK,
     Route: 065
  2. SERTRALINE HYDROCHLORIDE [Suspect]
     Active Substance: SERTRALINE HYDROCHLORIDE
     Indication: Product used for unknown indication
     Dosage: UNK UNK,UNK,
     Route: 065
  3. HELIUM [Suspect]
     Active Substance: HELIUM
     Indication: Product used for unknown indication
     Dosage: UNK UNK,UNK,
     Route: 048
  4. HELIUM [Suspect]
     Active Substance: HELIUM
     Dosage: UNK UNK,UNK,

REACTIONS (1)
  - Completed suicide [Fatal]
